FAERS Safety Report 22155001 (Version 2)
Quarter: 2023Q2

REPORT INFORMATION
  Report Type: Other
  Country: EG (occurrence: EG)
  Receive Date: 20230330
  Receipt Date: 20230512
  Transmission Date: 20230722
  Serious: Yes (Other)
  Sender: FDA-Public Use
  Company Number: EG-002147023-NVSC2023EG060806

PATIENT
  Age: 69 Year
  Sex: Male

DRUGS (5)
  1. LUCENTIS [Suspect]
     Active Substance: RANIBIZUMAB
     Indication: Diabetic retinal oedema
     Dosage: UNK ( IN LEFT EYE)
     Route: 050
     Dates: start: 202207, end: 202212
  2. LUCENTIS [Suspect]
     Active Substance: RANIBIZUMAB
     Dosage: UNK ( IN RIGHT EYE)
     Route: 050
     Dates: start: 202301, end: 20230202
  3. TYMER [Concomitant]
     Indication: Product used for unknown indication
     Dosage: 1 DRP, 4 TIMES DAILY/10 DAYS  (AFTER EVERY LUCENTIS INJECTION SINCE JULY 2022 AND STOPPED AFTER 10 D
     Dates: start: 202207
  4. MOXIFLOXACIN [Concomitant]
     Active Substance: MOXIFLOXACIN
     Indication: Intraocular lens implant
     Dosage: UNK (ONE DROP 3 TIMES DAILY /10 DAYS) (STOPPED AFTER 10 DAYS)U
     Dates: start: 20230302
  5. BRIMONIDINE [Concomitant]
     Active Substance: BRIMONIDINE TARTRATE
     Indication: Intraocular lens implant
     Dosage: UNK (ONE DROP TWICE DAILY /10 DAYS) (STOPPED AFTER 10 DAYS)
     Dates: start: 20230202

REACTIONS (7)
  - Macular oedema [Not Recovered/Not Resolved]
  - Visual impairment [Not Recovered/Not Resolved]
  - Cataract [Recovered/Resolved]
  - Cataract [Not Recovered/Not Resolved]
  - Vision blurred [Not Recovered/Not Resolved]
  - Neovascularisation [Not Recovered/Not Resolved]
  - Drug ineffective [Unknown]

NARRATIVE: CASE EVENT DATE: 20220701
